FAERS Safety Report 5253241-8 (Version None)
Quarter: 2007Q1

REPORT INFORMATION
  Report Type: 
  Country: None (occurrence: None)
  Receive Date: 20070301
  Receipt Date: 20070219
  Transmission Date: 20070707
  Serious: Yes (Other)
  Sender: FDA-Public Use
  Company Number: 2007UW03235

PATIENT
  Age: 25 Year
  Sex: Male

DRUGS (4)
  1. SEROQUEL [Suspect]
     Indication: BIPOLAR DISORDER
     Dosage: 25 MG Q AM, 25 MG Q MID DAY AND 50 MG Q HS
     Route: 048
     Dates: start: 20070201
  2. SEROQUEL [Suspect]
     Dosage: 25 MG Q MID DAY AND 50 MG Q HS
     Route: 048
     Dates: start: 20070201
  3. LITHIUM CARBONATE [Concomitant]
  4. SYNTHROID [Concomitant]

REACTIONS (2)
  - LOSS OF CONSCIOUSNESS [None]
  - THIRST [None]
